FAERS Safety Report 8799103 (Version 1)
Quarter: 2012Q4

REPORT INFORMATION
  Report Type: Report from Study
  Country: JP (occurrence: JP)
  Receive Date: 20120920
  Receipt Date: 20120920
  Transmission Date: 20130627
  Serious: Yes (Death)
  Sender: FDA-Public Use
  Company Number: JP-EISAI INC-E2020-11352-CLI-JP

PATIENT
  Age: 78 Year
  Sex: Male

DRUGS (13)
  1. ARICEPT [Suspect]
     Indication: DEMENTIA ALZHEIMER^S TYPE
     Route: 048
     Dates: start: 20111205, end: 20111225
  2. ARICEPT [Suspect]
     Route: 048
     Dates: start: 20111226, end: 20120528
  3. JZOLOFT [Concomitant]
     Indication: DEPRESSION
     Route: 048
  4. RIZE [Concomitant]
     Indication: ANXIETY
     Route: 048
  5. NAUZELIN [Concomitant]
     Indication: PROPHYLAXIS
     Route: 048
  6. LASIX [Concomitant]
     Indication: CARDIAC FAILURE CHRONIC
     Route: 048
  7. HALFDIGOXIN [Concomitant]
     Indication: CARDIAC FAILURE CHRONIC
     Route: 048
  8. ZYLORIC [Concomitant]
     Indication: HYPERURICAEMIA
     Route: 048
  9. EQUA [Concomitant]
     Route: 048
  10. METHYLCOBAL [Concomitant]
     Indication: NEUROPATHY PERIPHERAL
     Route: 048
  11. DAONIL [Concomitant]
     Route: 048
  12. METGLUCO [Concomitant]
     Route: 048
  13. BASEN [Concomitant]
     Indication: DIABETES MELLITUS
     Route: 048

REACTIONS (1)
  - Sudden death [Fatal]
